FAERS Safety Report 6752437-3 (Version None)
Quarter: 2010Q2

REPORT INFORMATION
  Report Type: 
  Country: None (occurrence: None)
  Receive Date: 20100602
  Receipt Date: 20100527
  Transmission Date: 20101027
  Serious: Yes (Death, Hospitalization)
  Sender: FDA-Public Use
  Company Number: GB-ELI_LILLY_AND_COMPANY-GB201004003888

PATIENT
  Sex: Male
  Weight: 56 kg

DRUGS (7)
  1. ALIMTA [Suspect]
     Indication: NON-SMALL CELL LUNG CANCER METASTATIC
     Dosage: 825 MG, UNKNOWN
     Route: 042
  2. CISPLATIN [Concomitant]
     Indication: NON-SMALL CELL LUNG CANCER
     Dosage: UNK, UNKNOWN
     Route: 065
  3. ZOTON [Concomitant]
     Indication: DYSPHAGIA
     Dosage: 30 MG, UNK
     Route: 048
  4. VITAMIN B-12 [Concomitant]
     Dates: start: 20091026
  5. FOLATE [Concomitant]
     Dates: start: 20091026
  6. ANTIEMETICS AND ANTINAUSEANTS [Concomitant]
  7. ANTIHYPERTENSIVES [Concomitant]

REACTIONS (5)
  - DYSPHAGIA [None]
  - DYSPNOEA [None]
  - PNEUMONIA [None]
  - PNEUMONIA ASPIRATION [None]
  - RESPIRATORY FAILURE [None]
